FAERS Safety Report 16279169 (Version 4)
Quarter: 2020Q3

REPORT INFORMATION
  Report Type: Spontaneous
  Country: DE (occurrence: DE)
  Receive Date: 20190506
  Receipt Date: 20200929
  Transmission Date: 20201102
  Serious: Yes (Hospitalization, Other)
  Sender: FDA-Public Use
  Company Number: PHHY2019DE102935

PATIENT
  Age: 70 Year
  Sex: Female

DRUGS (8)
  1. LEVOTHYROXINE. [Concomitant]
     Active Substance: LEVOTHYROXINE
     Dosage: 75 UG, QD
     Route: 065
     Dates: start: 201611
  2. VALSARTAN/HYDROCHLOROTHIAZIDE [Concomitant]
     Active Substance: HYDROCHLOROTHIAZIDE\VALSARTAN
     Indication: PRODUCT USED FOR UNKNOWN INDICATION
     Dosage: UNK, QD
     Route: 065
  3. L THYROXIN HENNING [Concomitant]
     Active Substance: LEVOTHYROXINE SODIUM
     Dosage: UNK, QD (1X 0.05 MG)
     Route: 065
  4. HYDROCHLOROTHIAZIDE,VALSARTAN [Suspect]
     Active Substance: HYDROCHLOROTHIAZIDE\VALSARTAN
     Indication: HYPERTENSION
     Dosage: 1 DF, QD
     Route: 065
     Dates: start: 20120515, end: 20170322
  5. L?THYROX HEXAL [Concomitant]
     Active Substance: LEVOTHYROXINE SODIUM
     Indication: PRODUCT USED FOR UNKNOWN INDICATION
     Dosage: 88 UG, QD
     Route: 065
  6. VALSACOR [Concomitant]
     Active Substance: VALSARTAN
     Indication: PRODUCT USED FOR UNKNOWN INDICATION
     Dosage: UNK
     Route: 065
     Dates: start: 20170322
  7. LEVOTHYROXINE. [Concomitant]
     Active Substance: LEVOTHYROXINE
     Indication: PRODUCT USED FOR UNKNOWN INDICATION
     Dosage: 100 UG, QD
     Route: 065
     Dates: end: 201611
  8. L THYROXIN HENNING [Concomitant]
     Active Substance: LEVOTHYROXINE SODIUM
     Indication: PRODUCT USED FOR UNKNOWN INDICATION
     Dosage: UNK, QD, (? X 0.025 MG)
     Route: 065

REACTIONS (32)
  - Diverticulitis [Unknown]
  - Pain in extremity [Unknown]
  - Sciatica [Unknown]
  - Arthralgia [Unknown]
  - Varicose vein [Unknown]
  - Dysphagia [Unknown]
  - Osteoarthritis [Unknown]
  - Flank pain [Unknown]
  - Weight fluctuation [Unknown]
  - Hypothyroidism [Unknown]
  - Dysphonia [Unknown]
  - Arthropathy [Unknown]
  - Cardiac failure [Unknown]
  - Fatigue [Unknown]
  - Chondropathy [Unknown]
  - Weight increased [Unknown]
  - Intervertebral disc protrusion [Unknown]
  - Back pain [Unknown]
  - Peripheral swelling [Unknown]
  - Epicondylitis [Unknown]
  - Eye disorder [Unknown]
  - Muscle spasms [Unknown]
  - Abdominal pain [Unknown]
  - Hyperhidrosis [Unknown]
  - Mental disorder [Unknown]
  - Bursitis [Unknown]
  - Nasopharyngitis [Unknown]
  - Loss of personal independence in daily activities [Unknown]
  - Peripheral venous disease [Unknown]
  - Patellofemoral pain syndrome [Unknown]
  - Intervertebral disc disorder [Unknown]
  - Rheumatic disorder [Unknown]

NARRATIVE: CASE EVENT DATE: 2016
